FAERS Safety Report 6090550-7 (Version None)
Quarter: 2009Q1

REPORT INFORMATION
  Report Type: 
  Country: None (occurrence: None)
  Receive Date: 20090224
  Receipt Date: 20090113
  Transmission Date: 20090719
  Serious: No
  Sender: FDA-Public Use
  Company Number: US-ABBOTT-09P-163-0497958-00

PATIENT
  Sex: Male
  Weight: 63.56 kg

DRUGS (5)
  1. SIMCOR [Suspect]
     Indication: BLOOD CHOLESTEROL INCREASED
     Dosage: 500/20 MG
     Route: 048
     Dates: start: 20080901, end: 20090111
  2. SIMCOR [Suspect]
     Indication: ARTERIOSCLEROSIS
  3. ADVICOR [Suspect]
     Indication: BLOOD CHOLESTEROL INCREASED
     Dosage: 500/20 MG
     Dates: end: 20080901
  4. ADVICOR [Suspect]
     Indication: ARTERIOSCLEROSIS
  5. METANX [Concomitant]
     Indication: BLOOD HOMOCYSTEINE INCREASED

REACTIONS (2)
  - PAIN [None]
  - PAIN IN EXTREMITY [None]
